FAERS Safety Report 8097770-0 (Version None)
Quarter: 2012Q1

REPORT INFORMATION
  Report Type: 
  Country: None (occurrence: None)
  Receive Date: 20120128
  Receipt Date: 20110718
  Transmission Date: 20120608
  Serious: No
  Sender: FDA-Public Use
  Company Number: US-ABBOTT-11P-163-0839938-00

PATIENT
  Sex: Female

DRUGS (4)
  1. PREDNISONE TAB [Concomitant]
     Indication: CROHN'S DISEASE
     Route: 048
  2. HUMIRA [Suspect]
     Indication: CROHN'S DISEASE
     Route: 058
     Dates: start: 20110718, end: 20110718
  3. NEXIUM [Concomitant]
     Indication: CROHN'S DISEASE
     Route: 048
  4. SULFASALAZINE [Concomitant]
     Indication: CROHN'S DISEASE

REACTIONS (2)
  - INJECTION SITE URTICARIA [None]
  - INJECTION SITE REACTION [None]
